FAERS Safety Report 5854270-3 (Version None)
Quarter: 2008Q3

REPORT INFORMATION
  Report Type: 
  Country: None (occurrence: None)
  Receive Date: 20080822
  Receipt Date: 20080814
  Transmission Date: 20090109
  Serious: Yes (Other)
  Sender: FDA-Public Use
  Company Number: US-GENENTECH-254864

PATIENT
  Sex: Male
  Weight: 66 kg

DRUGS (4)
  1. PLACEBO [Suspect]
     Indication: NON-SMALL CELL LUNG CANCER
     Dosage: 1050 MG, UNK
     Route: 042
     Dates: start: 20071030, end: 20071121
  2. BEVACIZUMAB [Suspect]
     Indication: NON-SMALL CELL LUNG CANCER
     Dosage: 1050 MG, UNK
     Route: 042
     Dates: start: 20071030, end: 20071121
  3. CARBOPLATIN [Suspect]
     Indication: NON-SMALL CELL LUNG CANCER
     Dosage: 1000 MG, UNK
     Route: 042
     Dates: start: 20071030, end: 20071121
  4. PACLITAXEL [Suspect]
     Indication: NON-SMALL CELL LUNG CANCER
     Dosage: 368 MG, UNK
     Route: 042
     Dates: start: 20071030, end: 20071121

REACTIONS (1)
  - LEFT VENTRICULAR DYSFUNCTION [None]
